FAERS Safety Report 7102476-8 (Version None)
Quarter: 2010Q4

REPORT INFORMATION
  Report Type: 
  Country: None (occurrence: None)
  Receive Date: 20101109
  Receipt Date: 20101027
  Transmission Date: 20110411
  Serious: Yes (Other)
  Sender: FDA-Public Use
  Company Number: US-1183880

PATIENT
  Age: 73 Year
  Sex: Female
  Weight: 96.1626 kg

DRUGS (5)
  1. SYSTANE EYE DROPS [Suspect]
     Indication: EYE IRRITATION
     Dosage: (1 GTT OU, TWO OR THREE TIMES A DAY, AS NEEDED OPHTHALMIC)
     Route: 047
     Dates: start: 20100801, end: 20101027
  2. SYSTANE EYE DROPS [Suspect]
     Indication: EYE PAIN
     Dosage: (1 GTT OU, TWO OR THREE TIMES A DAY, AS NEEDED OPHTHALMIC)
     Route: 047
     Dates: start: 20100801, end: 20101027
  3. COSOPT [Concomitant]
  4. ALPHAGAN [Concomitant]
  5. LUMIGAN [Concomitant]

REACTIONS (1)
  - VISUAL ACUITY REDUCED [None]
